FAERS Safety Report 25896154 (Version 2)
Quarter: 2025Q4

REPORT INFORMATION
  Report Type: Report from Study
  Country: US (occurrence: US)
  Receive Date: 20251008
  Receipt Date: 20251115
  Transmission Date: 20260118
  Serious: Yes (Hospitalization, Other)
  Sender: TAKEDA
  Company Number: US-TAKEDA-2025TUS081582

PATIENT
  Sex: Female

DRUGS (2)
  1. GLASSIA [Suspect]
     Active Substance: .ALPHA.1-PROTEINASE INHIBITOR HUMAN
     Indication: Alpha-1 antitrypsin deficiency
     Dosage: UNK
  2. GLASSIA [Suspect]
     Active Substance: .ALPHA.1-PROTEINASE INHIBITOR HUMAN

REACTIONS (11)
  - Neuropathy peripheral [Unknown]
  - Vomiting [Unknown]
  - Pharyngeal inflammation [Recovered/Resolved]
  - Eye pruritus [Recovered/Resolved]
  - Infusion site pruritus [Recovered/Resolved]
  - Eye swelling [Recovered/Resolved]
  - Hot flush [Unknown]
  - Contusion [Recovered/Resolved]
  - Cold flash [Unknown]
  - Pain [Unknown]
  - Pruritus [Unknown]

NARRATIVE: CASE EVENT DATE: 20250915
